FAERS Safety Report 8608203-7 (Version None)
Quarter: 2012Q3

REPORT INFORMATION
  Report Type: 
  Country: None (occurrence: None)
  Receive Date: 20120821
  Receipt Date: 20120814
  Transmission Date: 20120928
  Serious: Yes (Hospitalization)
  Sender: FDA-Public Use
  Company Number: AR-PFIZER INC-2012179649

PATIENT
  Age: 39 Year
  Sex: Male

DRUGS (4)
  1. HIDROCORTIZON [Concomitant]
     Dosage: UNK
  2. T4 [Concomitant]
     Dosage: UNK
  3. NEBIDO [Concomitant]
     Dosage: UNK
  4. SOMAVERT [Suspect]
     Indication: ACROMEGALY
     Dosage: 10 MG, 7X/WEEK
     Route: 058
     Dates: start: 20120502

REACTIONS (1)
  - ENCEPHALITIS [None]
